FAERS Safety Report 12277432 (Version 1)
Quarter: 2016Q2

REPORT INFORMATION
  Report Type: Spontaneous
  Country: IN (occurrence: IN)
  Receive Date: 20160418
  Receipt Date: 20160418
  Transmission Date: 20160815
  Serious: Yes (Hospitalization)
  Sender: FDA-Public Use
  Company Number: IN-SEBELA IRELAND LIMITED-2016SEB00267

PATIENT
  Age: 29 Year
  Sex: Female

DRUGS (1)
  1. HYDROCORTISONE. [Suspect]
     Active Substance: HYDROCORTISONE
     Indication: PLANTAR FASCIITIS
     Dosage: UNK UNK, ONCE
     Route: 065
     Dates: start: 201108, end: 201108

REACTIONS (2)
  - Staphylococcal infection [Recovered/Resolved]
  - Compartment syndrome [Recovered/Resolved]

NARRATIVE: CASE EVENT DATE: 2011
